FAERS Safety Report 21805472 (Version 1)
Quarter: 2023Q1

REPORT INFORMATION
  Report Type: Spontaneous
  Country: US (occurrence: US)
  Receive Date: 20230102
  Receipt Date: 20230102
  Transmission Date: 20230418
  Serious: Yes (Other)
  Sender: FDA-Public Use
  Company Number: US-SA-SAC20221230000340

PATIENT
  Sex: Male

DRUGS (11)
  1. ELOCTATE [Suspect]
     Active Substance: EFMOROCTOCOG ALFA
     Indication: Factor VIII deficiency
     Dosage: 3000 U, Q4D
     Route: 042
  2. ELOCTATE [Suspect]
     Active Substance: EFMOROCTOCOG ALFA
     Indication: Factor VIII deficiency
     Dosage: 3000 U, Q4D
     Route: 042
  3. ELOCTATE [Suspect]
     Active Substance: EFMOROCTOCOG ALFA
     Dosage: 6000 IU, PRN
     Route: 042
  4. ELOCTATE [Suspect]
     Active Substance: EFMOROCTOCOG ALFA
     Dosage: 6000 IU, PRN
     Route: 042
  5. ELOCTATE [Suspect]
     Active Substance: EFMOROCTOCOG ALFA
     Dosage: 6000 IU, Q4D
     Route: 042
  6. ELOCTATE [Suspect]
     Active Substance: EFMOROCTOCOG ALFA
     Dosage: 6000 IU, Q4D
     Route: 042
  7. VICODIN HP [Concomitant]
     Active Substance: ACETAMINOPHEN\HYDROCODONE BITARTRATE
  8. AMLODIPINE BESYLATE [Concomitant]
     Active Substance: AMLODIPINE BESYLATE
  9. LISINOPRIL [Concomitant]
     Active Substance: LISINOPRIL
  10. IRON [Concomitant]
     Active Substance: IRON
  11. KEPPRA [Concomitant]
     Active Substance: LEVETIRACETAM

REACTIONS (1)
  - Haemorrhage [Unknown]
